FAERS Safety Report 10179158 (Version 1)
Quarter: 2014Q2

REPORT INFORMATION
  Report Type: Spontaneous
  Country: US (occurrence: None)
  Receive Date: 20140516
  Receipt Date: 20140516
  Transmission Date: 20141212
  Serious: Yes (Disabling)
  Sender: FDA-Public Use
  Company Number: None

PATIENT
  Age: 72 Year
  Sex: Male
  Weight: 74.84 kg

DRUGS (5)
  1. MYRBETRIQ [Suspect]
     Indication: URINARY INCONTINENCE
     Dosage: ONE TAB QD ORAL
     Dates: start: 20140123, end: 20140320
  2. ZOLPIDEM [Concomitant]
  3. CRESTOR [Concomitant]
  4. LOVAZAL [Concomitant]
  5. ADULT 50+ MULTIVIT [Concomitant]

REACTIONS (1)
  - Porokeratosis [None]
